FAERS Safety Report 16127831 (Version 2)
Quarter: 2022Q2

REPORT INFORMATION
  Report Type: Spontaneous
  Country: US (occurrence: US)
  Receive Date: 20190328
  Receipt Date: 20220420
  Transmission Date: 20220721
  Serious: Yes (Other)
  Sender: FDA-Public Use
  Company Number: US-TEVA-2019-US-1029988

PATIENT
  Age: 73 Year
  Sex: Female

DRUGS (8)
  1. LEUCOVORIN [Suspect]
     Active Substance: LEUCOVORIN
     Indication: Colorectal cancer metastatic
     Dosage: AS A PART OF FOLFIRI REGIMEN
     Route: 065
  2. FLUOROURACIL [Suspect]
     Active Substance: FLUOROURACIL
     Indication: Colorectal cancer metastatic
     Dosage: AS A PART OF FOLFIRI REGIMEN
     Route: 065
  3. IRINOTECAN [Suspect]
     Active Substance: IRINOTECAN
     Indication: Colorectal cancer metastatic
     Dosage: AS A PART OF FOLFIRI REGIMEN
     Route: 065
  4. BEVACIZUMAB [Suspect]
     Active Substance: BEVACIZUMAB
     Indication: Colorectal cancer metastatic
     Route: 065
  5. PEMBROLIZUMAB [Suspect]
     Active Substance: PEMBROLIZUMAB
     Indication: Colorectal cancer metastatic
     Dosage: RECEIVED 20 CYCLES
     Route: 042
     Dates: start: 20160513, end: 20170706
  6. PEMBROLIZUMAB [Suspect]
     Active Substance: PEMBROLIZUMAB
     Indication: Colorectal cancer metastatic
     Route: 042
     Dates: end: 201707
  7. RIVAROXABAN [Concomitant]
     Active Substance: RIVAROXABAN
     Indication: Pulmonary embolism
     Dosage: WAS ON MAINTENANCE RIVAROXABAN
     Route: 065
  8. HUMAN IMMUNOGLOBULIN G [Concomitant]
     Active Substance: HUMAN IMMUNOGLOBULIN G
     Indication: Guillain-Barre syndrome
     Dosage: HAD BEEN MAINTAINED SINCE HER GBS DIAGNOSIS AND WAS RECEIVING EVERY 4 WEEKS
     Route: 042
     Dates: start: 2014

REACTIONS (4)
  - Cellulitis [Unknown]
  - Fatigue [Unknown]
  - Fatigue [Unknown]
  - Myalgia [Unknown]
